FAERS Safety Report 5595836-8 (Version None)
Quarter: 2008Q1

REPORT INFORMATION
  Report Type: 
  Country: None (occurrence: None)
  Receive Date: 20080118
  Receipt Date: 20080109
  Transmission Date: 20080703
  Serious: Yes (Other)
  Sender: FDA-Public Use
  Company Number: US-JNJFOC-20080102150

PATIENT
  Age: 64 Year
  Sex: Male
  Weight: 89.81 kg

DRUGS (8)
  1. EXTRA STRENGTH TYLENOL [Suspect]
     Indication: INSOMNIA
  2. TYLENOL SINUS CONGESTION + PAIN NIGHTTIME COOL BURST [Suspect]
     Indication: SINUS DISORDER
  3. COUMADIN [Concomitant]
     Indication: ANTIPLATELET THERAPY
     Dosage: IN AM
  4. SIMVASTATIN [Concomitant]
     Indication: BLOOD CHOLESTEROL INCREASED
  5. BAYER ASA [Concomitant]
     Indication: CARDIAC DISORDER
  6. VITAMIN [Concomitant]
     Indication: GENERAL PHYSICAL CONDITION
  7. CALTRATE [Concomitant]
     Indication: GENERAL PHYSICAL CONDITION
  8. GARLIC [Concomitant]
     Indication: GENERAL PHYSICAL CONDITION

REACTIONS (3)
  - DRUG ADMINISTRATION ERROR [None]
  - DYSPNOEA [None]
  - LYMPHADENOPATHY [None]
